FAERS Safety Report 16688929 (Version 1)
Quarter: 2019Q4

REPORT INFORMATION
  Report Type: Spontaneous
  Country: US (occurrence: US)
  Receive Date: 20190809
  Receipt Date: 20190809
  Transmission Date: 20200122
  Serious: No
  Sender: FDA-Public Use
  Company Number: None

PATIENT
  Age: 48 Year
  Sex: Female
  Weight: 101.25 kg

DRUGS (2)
  1. KETOTIFIN FUMATE OPHTHALMIC SOLUTION ANTIHISTAMINE EYE DROPS [Suspect]
     Active Substance: KETOTIFEN FUMARATE
     Indication: MULTIPLE ALLERGIES
     Dosage: ?          QUANTITY:1 DROP(S);?
     Route: 047
     Dates: start: 20190808, end: 20190808
  2. MULTI VITAMIN [Concomitant]
     Active Substance: VITAMINS

REACTIONS (6)
  - Eye pain [None]
  - Vision blurred [None]
  - Erythema [None]
  - Burning sensation [None]
  - Instillation site pain [None]
  - Thermal burn [None]

NARRATIVE: CASE EVENT DATE: 20190808
